FAERS Safety Report 7915908-X (Version None)
Quarter: 2011Q4

REPORT INFORMATION
  Report Type: 
  Country: None (occurrence: None)
  Receive Date: 20111115
  Receipt Date: 20111107
  Transmission Date: 20120403
  Serious: Yes (Other)
  Sender: FDA-Public Use
  Company Number: JP-ROCHE-1013153

PATIENT
  Age: 63 Year
  Sex: Female

DRUGS (3)
  1. AVASTIN [Concomitant]
  2. VISUDYNE [Concomitant]
  3. LUCENTIS [Suspect]
     Indication: AGE-RELATED MACULAR DEGENERATION
     Route: 050
     Dates: start: 20110401

REACTIONS (2)
  - VISUAL ACUITY REDUCED [None]
  - RETINAL HAEMORRHAGE [None]
